FAERS Safety Report 13759043 (Version 1)
Quarter: 2017Q3

REPORT INFORMATION
  Report Type: Report from Study
  Country: CN (occurrence: CN)
  Receive Date: 20170717
  Receipt Date: 20170717
  Transmission Date: 20171127
  Serious: Yes (Hospitalization)
  Sender: FDA-Public Use
  Company Number: CN-PFIZER INC-2017308324

PATIENT
  Age: 46 Year
  Sex: Male
  Weight: 73 kg

DRUGS (6)
  1. ASPIRIN /00002701/ [Concomitant]
     Active Substance: ASPIRIN
  2. SHEXIANG BAOXIN PILL [Concomitant]
  3. ATORVASTATIN CALCIUM. [Suspect]
     Active Substance: ATORVASTATIN CALCIUM
     Indication: DYSLIPIDAEMIA
     Dosage: 20 MG, DAILY
     Route: 048
     Dates: start: 20170526
  4. CLOPIDOGREL [Concomitant]
     Active Substance: CLOPIDOGREL BISULFATE
  5. METOPROLOL. [Concomitant]
     Active Substance: METOPROLOL
  6. ISOSORBIDE MONONITRATE. [Concomitant]
     Active Substance: ISOSORBIDE MONONITRATE

REACTIONS (1)
  - Arteriosclerosis coronary artery [Recovered/Resolved]

NARRATIVE: CASE EVENT DATE: 20170529
